FAERS Safety Report 4868536-7 (Version None)
Quarter: 2005Q4

REPORT INFORMATION
  Report Type: 
  Country: None (occurrence: None)
  Receive Date: 20051223
  Receipt Date: 20051215
  Transmission Date: 20060501
  Serious: Yes (Other)
  Sender: FDA-Public Use
  Company Number: 2005169409

PATIENT
  Sex: Female

DRUGS (7)
  1. ZITHROMAX (CAPS) (AZITHROMYCIN) [Suspect]
     Indication: MYCOBACTERIUM AVIUM COMPLEX INFECTION
     Dosage: SEE IMAGE
     Route: 048
     Dates: start: 20050501, end: 20050609
  2. ZITHROMAX (CAPS) (AZITHROMYCIN) [Suspect]
     Indication: MYCOBACTERIUM AVIUM COMPLEX INFECTION
     Dosage: SEE IMAGE
     Route: 048
     Dates: start: 19970101
  3. ZITHROMAX (CAPS) (AZITHROMYCIN) [Suspect]
     Indication: MYCOBACTERIUM AVIUM COMPLEX INFECTION
     Dosage: SEE IMAGE
     Route: 048
     Dates: start: 20050801
  4. MYAMBUTOL [Suspect]
     Indication: MYCOBACTERIUM AVIUM COMPLEX INFECTION
     Dosage: SEE IMAGE
     Dates: start: 20050501, end: 20050609
  5. MYAMBUTOL [Suspect]
     Indication: MYCOBACTERIUM AVIUM COMPLEX INFECTION
     Dosage: SEE IMAGE
     Dates: start: 19970101
  6. MYAMBUTOL [Suspect]
     Indication: MYCOBACTERIUM AVIUM COMPLEX INFECTION
     Dosage: SEE IMAGE
     Dates: start: 20050801
  7. LEVAQUIN [Suspect]
     Dates: start: 19970101

REACTIONS (15)
  - BLOOD ALBUMIN DECREASED [None]
  - FEELING ABNORMAL [None]
  - HALLUCINATION, VISUAL [None]
  - HEARING IMPAIRED [None]
  - INSOMNIA [None]
  - MALAISE [None]
  - OPTIC NEURITIS [None]
  - PERSONALITY CHANGE [None]
  - PREALBUMIN DECREASED [None]
  - PROTEIN TOTAL DECREASED [None]
  - TOOTH DISORDER [None]
  - TOOTH EXTRACTION [None]
  - VISUAL DISTURBANCE [None]
  - WEIGHT DECREASED [None]
  - WEIGHT FLUCTUATION [None]
